FAERS Safety Report 5839613-9 (Version None)
Quarter: 2008Q3

REPORT INFORMATION
  Report Type: 
  Country: None (occurrence: None)
  Receive Date: 20080811
  Receipt Date: 20080806
  Transmission Date: 20090109
  Serious: Yes (Life-Threatening, Hospitalization)
  Sender: FDA-Public Use
  Company Number: ES-WYE-G01871008

PATIENT
  Age: 42 Year
  Sex: Female

DRUGS (9)
  1. DOBUPAL RETARD [Suspect]
     Route: 048
     Dates: start: 20080101, end: 20080607
  2. PRIMPERAN TAB [Interacting]
     Dosage: UNKNOWN
     Dates: start: 20080101
  3. RELPAX [Interacting]
     Indication: MIGRAINE
     Route: 048
     Dates: start: 20080606, end: 20080607
  4. DUPHALAC [Concomitant]
     Dosage: UNKNOWN
  5. VOLTAREN [Interacting]
     Route: 048
     Dates: start: 20080101
  6. PARACETAMOL [Concomitant]
     Dosage: UNKNOWN
  7. PANTOPRAZOLE SODIUM [Concomitant]
     Dosage: UNKNOWN
  8. ALAPRYL [Interacting]
     Route: 048
     Dates: start: 20080101
  9. STRATTERA [Interacting]
     Route: 048
     Dates: start: 20080606, end: 20080607

REACTIONS (2)
  - ACUTE CORONARY SYNDROME [None]
  - DRUG INTERACTION [None]
